FAERS Safety Report 24659124 (Version 2)
Quarter: 2024Q4

REPORT INFORMATION
  Report Type: Spontaneous
  Country: US (occurrence: US)
  Receive Date: 20241125
  Receipt Date: 20241212
  Transmission Date: 20250115
  Serious: No
  Sender: CALLIDITAS THERAPEUTICS AB
  Company Number: US-Calliditas-2024CAL01768

PATIENT
  Age: 42 Year
  Sex: Female

DRUGS (1)
  1. TARPEYO [Suspect]
     Active Substance: BUDESONIDE
     Indication: IgA nephropathy
     Route: 048
     Dates: start: 20240731

REACTIONS (4)
  - Peripheral swelling [Unknown]
  - Muscle spasms [Unknown]
  - Tremor [Unknown]
  - Adverse event [Not Recovered/Not Resolved]
